FAERS Safety Report 6671118-8 (Version None)
Quarter: 2010Q2

REPORT INFORMATION
  Report Type: 
  Country: None (occurrence: None)
  Receive Date: 20100407
  Receipt Date: 20100330
  Transmission Date: 20101027
  Serious: Yes (Hospitalization, Other)
  Sender: FDA-Public Use
  Company Number: JP-EISAI INC.-E2090-01117-SPO-JP

PATIENT
  Sex: Male

DRUGS (8)
  1. ZONISAMIDE [Suspect]
     Indication: EPILEPSY
     Route: 048
     Dates: end: 20100315
  2. NICORANDIS [Concomitant]
     Route: 048
  3. ALLELOCK [Concomitant]
     Route: 048
  4. GASRICK D [Concomitant]
     Route: 048
  5. GLUCOBAY [Concomitant]
     Route: 048
  6. TIGASON [Concomitant]
     Route: 048
  7. GLYSENNID [Concomitant]
     Route: 048
  8. GLUCOSE [Concomitant]

REACTIONS (4)
  - DEPRESSED LEVEL OF CONSCIOUSNESS [None]
  - FLUSHING [None]
  - HYPOHIDROSIS [None]
  - PYREXIA [None]
